FAERS Safety Report 17202218 (Version 1)
Quarter: 2019Q4

REPORT INFORMATION
  Report Type: Spontaneous
  Country: US (occurrence: US)
  Receive Date: 20191226
  Receipt Date: 20191226
  Transmission Date: 20200122
  Serious: No
  Sender: FDA-Public Use
  Company Number: US-PFIZER INC-2019428884

PATIENT
  Age: 69 Year
  Sex: Male

DRUGS (1)
  1. LYRICA [Suspect]
     Active Substance: PREGABALIN
     Dosage: 50 MG, 2X/DAY (TWO TABLETS BID (TWO TIMES A DAY))
     Route: 048

REACTIONS (3)
  - Neck pain [Unknown]
  - Back pain [Unknown]
  - Lumbar spinal stenosis [Unknown]
